FAERS Safety Report 9238898 (Version 1)
Quarter: 2013Q2

REPORT INFORMATION
  Report Type: Report from Study
  Country: MX (occurrence: MX)
  Receive Date: 20130418
  Receipt Date: 20130418
  Transmission Date: 20140414
  Serious: Yes (Other)
  Sender: FDA-Public Use
  Company Number: PHHY2013MX037467

PATIENT
  Age: 52 Year
  Sex: Female

DRUGS (3)
  1. TEGRETOL [Suspect]
     Indication: EPILEPSY
     Dosage: UNK UKN, UNK
     Route: 048
     Dates: start: 1972
  2. SYMBYAX [Concomitant]
     Indication: SLEEP DISORDER
     Dosage: UNK UKN, UNK
  3. LYRICA [Concomitant]
     Indication: ANXIOLYTIC THERAPY
     Dosage: UNK UKN, UNK

REACTIONS (2)
  - Central nervous system lesion [Not Recovered/Not Resolved]
  - Fibromyalgia [Not Recovered/Not Resolved]
